FAERS Safety Report 8223943-X (Version None)
Quarter: 2012Q1

REPORT INFORMATION
  Report Type: 
  Country: None (occurrence: None)
  Receive Date: 20120321
  Receipt Date: 20120314
  Transmission Date: 20120608
  Serious: Yes (Hospitalization)
  Sender: FDA-Public Use
  Company Number: US-PFIZER INC-2012068177

PATIENT
  Sex: Female

DRUGS (11)
  1. BONIVA [Concomitant]
     Dosage: UNK
  2. WELLBUTRIN [Concomitant]
     Dosage: UNK
  3. KLONOPIN [Concomitant]
     Dosage: UNK
  4. TOVIAZ [Suspect]
     Dosage: 8 MG, 1X/DAY
  5. LEXAPRO [Concomitant]
     Dosage: UNK
  6. PROTONIX [Suspect]
     Dosage: UNK
  7. PLAQUENIL [Concomitant]
     Dosage: UNK
  8. NUVELLE [Concomitant]
  9. CELEBREX [Suspect]
     Dosage: 200 MG, 2X/DAY
  10. LOTRONEX [Concomitant]
     Dosage: UNK
  11. REMERON [Concomitant]
     Dosage: UNK

REACTIONS (8)
  - MIGRAINE [None]
  - ANXIETY [None]
  - OSTEOPOROSIS [None]
  - FIBROMYALGIA [None]
  - HYPERTONIC BLADDER [None]
  - DEPRESSION [None]
  - ARTHRITIS [None]
  - GASTROOESOPHAGEAL REFLUX DISEASE [None]
